FAERS Safety Report 4664411-1 (Version None)
Quarter: 2005Q2

REPORT INFORMATION
  Report Type: 
  Country: None (occurrence: None)
  Receive Date: 20050518
  Receipt Date: 20050511
  Transmission Date: 20051028
  Serious: Yes (Hospitalization)
  Sender: FDA-Public Use
  Company Number: US-MERCK-0505USA01543

PATIENT
  Sex: Female
  Weight: 93 kg

DRUGS (2)
  1. VIOXX [Suspect]
     Indication: ARTHRITIS
     Route: 048
     Dates: start: 19990101, end: 20040901
  2. [THERAPY UNSPECIFIED] [Concomitant]
     Indication: DECREASED APPETITE
     Route: 065
     Dates: end: 20020627

REACTIONS (33)
  - ANAEMIA [None]
  - ANAEMIA POSTOPERATIVE [None]
  - ATRIAL FIBRILLATION [None]
  - AZOTAEMIA [None]
  - CARDIAC FAILURE CONGESTIVE [None]
  - COAGULOPATHY [None]
  - DEHYDRATION [None]
  - DIARRHOEA [None]
  - DILATATION ATRIAL [None]
  - EMOTIONAL DISTRESS [None]
  - ESCHERICHIA URINARY TRACT INFECTION [None]
  - HEART RATE INCREASED [None]
  - HIATUS HERNIA [None]
  - HYPERTENSION [None]
  - HYPERTENSIVE HEART DISEASE [None]
  - HYPOKALAEMIA [None]
  - HYPOMAGNESAEMIA [None]
  - HYPONATRAEMIA [None]
  - HYPOVOLAEMIA [None]
  - INFLUENZA LIKE ILLNESS [None]
  - INTERNATIONAL NORMALISED RATIO ABNORMAL [None]
  - METABOLIC ACIDOSIS [None]
  - MITRAL VALVE INCOMPETENCE [None]
  - OSTEOARTHRITIS [None]
  - OSTEOPOROSIS POSTMENOPAUSAL [None]
  - RENAL DISORDER [None]
  - RENAL FAILURE CHRONIC [None]
  - RESPIRATORY FAILURE [None]
  - THROMBOSIS [None]
  - TRICUSPID VALVE INCOMPETENCE [None]
  - URINARY TRACT INFECTION [None]
  - VENTRICULAR HYPERTROPHY [None]
  - VENTRICULAR HYPOKINESIA [None]
